FAERS Safety Report 25984984 (Version 1)
Quarter: 2025Q4

REPORT INFORMATION
  Report Type: Spontaneous
  Country: AU (occurrence: AU)
  Receive Date: 20251031
  Receipt Date: 20251031
  Transmission Date: 20260117
  Serious: Yes (Life-Threatening, Hospitalization, Other)
  Sender: TEVA
  Company Number: AU-TEVA-VS-3387038

PATIENT
  Age: 73 Year
  Sex: Male
  Weight: 62.5 kg

DRUGS (12)
  1. RIVAROXABAN [Suspect]
     Active Substance: RIVAROXABAN
     Indication: Product used for unknown indication
     Route: 065
  2. NOVORAPID [Concomitant]
     Active Substance: INSULIN ASPART
     Indication: Product used for unknown indication
     Route: 065
     Dates: start: 202411
  3. MINERAL OIL\PETROLATUM [Concomitant]
     Active Substance: MINERAL OIL\PETROLATUM
     Indication: Product used for unknown indication
     Route: 065
     Dates: start: 202501
  4. IRINOTECAN [Suspect]
     Active Substance: IRINOTECAN
     Indication: Adenocarcinoma pancreas
     Route: 042
     Dates: start: 20250507, end: 20250507
  5. OXALIPLATIN [Suspect]
     Active Substance: OXALIPLATIN
     Indication: Adenocarcinoma pancreas
     Route: 042
     Dates: start: 20250507, end: 20250507
  6. DAIVOBET [Concomitant]
     Active Substance: BETAMETHASONE DIPROPIONATE\CALCIPOTRIENE
     Indication: Product used for unknown indication
     Route: 065
     Dates: start: 2010
  7. MOMETASONE FUROATE [Concomitant]
     Active Substance: MOMETASONE FUROATE
     Indication: Product used for unknown indication
     Dosage: 1%
     Route: 065
     Dates: start: 2010
  8. STELARA [Concomitant]
     Active Substance: USTEKINUMAB
     Indication: Product used for unknown indication
     Route: 065
     Dates: start: 2010, end: 202409
  9. CREON [Concomitant]
     Active Substance: PANCRELIPASE AMYLASE\PANCRELIPASE LIPASE\PANCRELIPASE PROTEASE
     Indication: Product used for unknown indication
     Dosage: 1000
     Route: 065
     Dates: start: 20250324
  10. CONCORD SUNCHIH GPSP 2 IN 1 [Concomitant]
     Indication: Product used for unknown indication
     Route: 065
     Dates: start: 202408, end: 20250115
  11. FLUOROURACIL [Suspect]
     Active Substance: FLUOROURACIL
     Indication: Adenocarcinoma pancreas
     Route: 042
     Dates: start: 20250507, end: 20250509
  12. INTISMERAN AUTOGENE [Suspect]
     Active Substance: INTISMERAN AUTOGENE
     Indication: Adenocarcinoma pancreas
     Dosage: Q3 WK
     Route: 030
     Dates: start: 20250416

REACTIONS (5)
  - Sepsis [Recovered/Resolved]
  - Delirium [Recovered/Resolved]
  - Dizziness [Recovered/Resolved]
  - Portal vein thrombosis [Not Recovered/Not Resolved]
  - Colitis [Recovered/Resolved]

NARRATIVE: CASE EVENT DATE: 20250510
